FAERS Safety Report 22066058 (Version 1)
Quarter: 2023Q1

REPORT INFORMATION
  Report Type: Report from Study
  Country: US (occurrence: None)
  Receive Date: 20230306
  Receipt Date: 20230306
  Transmission Date: 20230417
  Serious: Yes (Death, Life-Threatening, Hospitalization)
  Sender: FDA-Public Use
  Company Number: 2021A025954

PATIENT
  Age: 73 Year
  Sex: Female
  Weight: 59.9 kg

DRUGS (10)
  1. OSIMERTINIB [Suspect]
     Active Substance: OSIMERTINIB
     Indication: Neoplasm
     Route: 048
     Dates: start: 20200924, end: 20201217
  2. TELISOTUZUMAB VEDOTIN [Suspect]
     Active Substance: TELISOTUZUMAB VEDOTIN
     Indication: Neoplasm
     Dosage: 1.9 MG/KG 1 IN 2 WK)
     Route: 042
     Dates: start: 20200924, end: 20201217
  3. ESTRACE [Concomitant]
     Active Substance: ESTRADIOL
     Indication: Neoplasm malignant
     Dosage: 2 MG
     Route: 048
     Dates: start: 2019
  4. FLUTICASONE [Concomitant]
     Active Substance: FLUTICASONE
     Indication: Hypersensitivity
     Route: 055
     Dates: start: 20200819
  5. PREMARIN [Concomitant]
     Active Substance: ESTROGENS, CONJUGATED
     Indication: Neoplasm malignant
     Route: 048
     Dates: start: 2019
  6. HYDROXYUREA [Concomitant]
     Active Substance: HYDROXYUREA
     Indication: Neoplasm malignant
     Route: 048
     Dates: start: 2007
  7. SYNTHROID [Concomitant]
     Active Substance: LEVOTHYROXINE SODIUM
     Indication: Hypothyroidism
     Route: 048
     Dates: start: 2019
  8. COZAAR [Concomitant]
     Active Substance: LOSARTAN POTASSIUM
     Indication: Hypertension
     Route: 048
     Dates: start: 2019
  9. TOPROL XL [Concomitant]
     Active Substance: METOPROLOL SUCCINATE
     Indication: Hypertension
     Route: 048
     Dates: start: 2019
  10. ZOLOFT [Concomitant]
     Active Substance: SERTRALINE HYDROCHLORIDE
     Indication: Depression
     Route: 048
     Dates: start: 2019

REACTIONS (2)
  - Deep vein thrombosis [Unknown]
  - Pneumonia [Fatal]

NARRATIVE: CASE EVENT DATE: 20201226
